FAERS Safety Report 5151765-5 (Version None)
Quarter: 2006Q4

REPORT INFORMATION
  Report Type: 
  Country: None (occurrence: None)
  Receive Date: 20061106
  Receipt Date: 20061025
  Transmission Date: 20070319
  Serious: Yes (Other)
  Sender: FDA-Public Use
  Company Number: B0444743A

PATIENT
  Age: 33 Year
  Sex: Female

DRUGS (9)
  1. ZIAGEN [Suspect]
     Indication: HIV INFECTION
  2. EPIVIR [Suspect]
     Indication: HIV INFECTION
  3. TENOFOVIR (TENOFOVIR) [Suspect]
     Indication: HIV INFECTION
  4. LOPINAVIR (LOPINAVIR) [Suspect]
     Indication: HIV INFECTION
  5. DIDANOSINE [Suspect]
     Indication: HIV INFECTION
  6. RITONAVIR (RITONAVIR) [Suspect]
     Indication: HIV INFECTION
  7. RIFABUTIN [Concomitant]
  8. ETHAMBUTOL HYDROCHLORIDE [Concomitant]
  9. CLARITHROMYCIN [Concomitant]

REACTIONS (11)
  - ACIDOSIS [None]
  - BRONCHOALVEOLAR LAVAGE ABNORMAL [None]
  - CHOLESTASIS [None]
  - GRANULOMATOUS LIVER DISEASE [None]
  - HYPERCHLORAEMIA [None]
  - IMMUNE RECONSTITUTION SYNDROME [None]
  - MYCOBACTERIUM AVIUM COMPLEX INFECTION [None]
  - NEPHROPATHY TOXIC [None]
  - RENAL FAILURE ACUTE [None]
  - RENAL TUBULAR DISORDER [None]
  - SPLENOMEGALY [None]
